FAERS Safety Report 8788487 (Version 1)
Quarter: 2012Q4

REPORT INFORMATION
  Report Type: 
  Country: US (occurrence: US)
  Receive Date: 20120914
  Receipt Date: 20120914
  Transmission Date: 20130627
  Serious: No
  Sender: FDA-Public Use
  Company Number: US-VERTEX PHARMACEUTICAL INC.-AE-2012-012017

PATIENT
  Age: 42 Year
  Sex: Female
  Weight: 83 kg

DRUGS (6)
  1. VX-950 [Suspect]
     Indication: HEPATITIS C
     Dosage: 750 mg, tid
     Route: 048
     Dates: start: 20120726
  2. PEGASYS [Concomitant]
     Indication: HEPATITIS C
     Dosage: 180 ?g, UNK
     Route: 058
     Dates: start: 20120726
  3. RIBAPAK [Concomitant]
     Indication: HEPATITIS C
     Dosage: 600 mg, bid
     Route: 048
     Dates: start: 20120726
  4. NUCYNTA [Concomitant]
     Dosage: 50 mg, prn
     Dates: start: 20120730
  5. LORAZEPAM [Concomitant]
     Dosage: 1 mg, qd
     Dates: start: 20120725
  6. VALTREX [Concomitant]
     Dosage: 500 mg, qd
     Dates: start: 20120725

REACTIONS (5)
  - Dysphonia [Unknown]
  - Pain [Unknown]
  - Somnolence [Unknown]
  - Fatigue [Unknown]
  - Nausea [Unknown]
